FAERS Safety Report 7201922-9 (Version None)
Quarter: 2010Q4

REPORT INFORMATION
  Report Type: 
  Country: None (occurrence: None)
  Receive Date: 20101229
  Receipt Date: 20101217
  Transmission Date: 20110411
  Serious: Yes (Other)
  Sender: FDA-Public Use
  Company Number: JP-PFIZER INC-2010175131

PATIENT
  Age: 79 Year
  Sex: Male

DRUGS (9)
  1. LYRICA [Suspect]
     Indication: POST HERPETIC NEURALGIA
     Dosage: 150 MG, DAILY
     Route: 048
     Dates: start: 20100701
  2. VOGLIBOSE [Concomitant]
  3. FUZULEBAN [Concomitant]
  4. MECOBALAMIN [Concomitant]
  5. BLOPRESS [Concomitant]
  6. ANPLAG [Concomitant]
  7. TULOBUTEROL [Concomitant]
  8. FLURBIPROFEN [Concomitant]
  9. AMARYL [Concomitant]
     Dosage: UNK

REACTIONS (2)
  - GLYCOSYLATED HAEMOGLOBIN INCREASED [None]
  - HYPERGLYCAEMIA [None]
